FAERS Safety Report 4712480-2 (Version None)
Quarter: 2005Q3

REPORT INFORMATION
  Report Type: 
  Country: None (occurrence: None)
  Receive Date: 20050711
  Receipt Date: 20050622
  Transmission Date: 20060218
  Serious: Yes (Hospitalization)
  Sender: FDA-Public Use
  Company Number: ATO-05-0241

PATIENT
  Age: 78 Year
  Sex: Male

DRUGS (6)
  1. TRISENOX [Suspect]
     Indication: MYELODYSPLASTIC SYNDROME
     Dosage: 20 MG QD X 5 DAYS IVI
     Route: 042
     Dates: start: 20050606, end: 20050610
  2. AGGRENOX [Concomitant]
  3. NORVASC [Concomitant]
  4. PREVECID [Concomitant]
  5. MEGESTROL ACETATE [Concomitant]
  6. VITAMIN D3 [Suspect]
     Dosage: QD
     Dates: start: 20050606, end: 20050610

REACTIONS (17)
  - ANAEMIA [None]
  - AORTIC VALVE SCLEROSIS [None]
  - ARTHRALGIA [None]
  - ASTHENIA [None]
  - ATRIOVENTRICULAR BLOCK FIRST DEGREE [None]
  - BUNDLE BRANCH BLOCK LEFT [None]
  - DIARRHOEA [None]
  - DRUG TOXICITY [None]
  - EMPHYSEMA [None]
  - HYPOXIA [None]
  - NAUSEA [None]
  - PLEURAL EFFUSION [None]
  - PULMONARY HYPERTENSION [None]
  - THROMBOCYTOPENIA [None]
  - VENTRICULAR HYPERTROPHY [None]
  - VOMITING [None]
  - WHEEZING [None]
